FAERS Safety Report 5566718-2 (Version None)
Quarter: 2007Q4

REPORT INFORMATION
  Report Type: 
  Country: None (occurrence: None)
  Receive Date: 20071218
  Receipt Date: 20071218
  Transmission Date: 20080405
  Serious: No
  Sender: FDA-Public Use
  Company Number: None

PATIENT
  Age: 51 Year
  Sex: Female
  Weight: 65.7716 kg

DRUGS (1)
  1. ZICAM NASAL SPRAY [Suspect]
     Indication: ANTIVIRAL PROPHYLAXIS
     Dosage: ONE SQUIRT IN EACH NOSTRIL   ONCE A DAY   NASAL  (USED ONE TIME)
     Route: 045
     Dates: start: 20071212, end: 20071212

REACTIONS (5)
  - AGEUSIA [None]
  - ANOSMIA [None]
  - ANXIETY [None]
  - BURNING SENSATION [None]
  - HYPOSMIA [None]
